FAERS Safety Report 4576374-8 (Version None)
Quarter: 2005Q1

REPORT INFORMATION
  Report Type: 
  Country: None (occurrence: None)
  Receive Date: 20050207
  Receipt Date: 20050124
  Transmission Date: 20050727
  Serious: Yes (Hospitalization)
  Sender: FDA-Public Use
  Company Number: 2005018405

PATIENT
  Age: 79 Year
  Sex: Male

DRUGS (4)
  1. CELEBREX [Suspect]
     Indication: ANKYLOSING SPONDYLITIS
     Dosage: 200 MG (200 MG, DAILY), ORAL
     Route: 048
     Dates: start: 20040512, end: 20040801
  2. ACETYLCYSTEINE [Concomitant]
  3. FORMOTEROL FUMARATE            (FORMOTEROL FUMARATE) [Concomitant]
  4. BETAMETHASONE VALERATE             (BETAMETHASONE VALERATE) [Concomitant]

REACTIONS (2)
  - HYPERTENSION [None]
  - MYOCARDIAL INFARCTION [None]
